FAERS Safety Report 13590106 (Version 2)
Quarter: 2017Q2

REPORT INFORMATION
  Report Type: Spontaneous
  Country: JP (occurrence: JP)
  Receive Date: 20170530
  Receipt Date: 20170601
  Transmission Date: 20170830
  Serious: Yes (Hospitalization, Other)
  Sender: FDA-Public Use
  Company Number: JP-FERRINGPH-2017FE02455

PATIENT

DRUGS (2)
  1. CHORIONIC GONADOTROPHIN [Suspect]
     Active Substance: CHORIOGONADOTROPIN ALFA
     Indication: OVULATION INDUCTION
  2. MENOTROPHIN HP [Suspect]
     Active Substance: MENOTROPINS
     Indication: OVULATION INDUCTION
     Dosage: 150 IU, TOTAL OF 1075 IU
     Route: 065

REACTIONS (2)
  - Ovarian rupture [Recovering/Resolving]
  - Ovarian hyperstimulation syndrome [Recovering/Resolving]
